FAERS Safety Report 7568189-3 (Version None)
Quarter: 2011Q2

REPORT INFORMATION
  Report Type: 
  Country: None (occurrence: None)
  Receive Date: 20110623
  Receipt Date: 20110617
  Transmission Date: 20111010
  Serious: Yes (Hospitalization)
  Sender: FDA-Public Use
  Company Number: US-SANOFI-AVENTIS-2011SA038795

PATIENT
  Age: 59 Year
  Sex: Male

DRUGS (2)
  1. INSULIN ASPART [Concomitant]
  2. LANTUS [Suspect]
     Dosage: DOSE:70 UNIT(S)
     Route: 058

REACTIONS (5)
  - MYOCARDIAL INFARCTION [None]
  - CONVULSION [None]
  - RESPIRATORY ARREST [None]
  - BLOOD GLUCOSE INCREASED [None]
  - LOSS OF CONSCIOUSNESS [None]
